FAERS Safety Report 4711278-9 (Version None)
Quarter: 2005Q3

REPORT INFORMATION
  Report Type: 
  Country: None (occurrence: None)
  Receive Date: 20050711
  Receipt Date: 20050629
  Transmission Date: 20060218
  Serious: Yes (Other)
  Sender: FDA-Public Use
  Company Number: 2005086127

PATIENT
  Age: 55 Year
  Sex: Female
  Weight: 63.5036 kg

DRUGS (8)
  1. PURELL ORIGINAL (ETHYL ALCOHOL) [Suspect]
     Indication: ANTIBIOTIC PROPHYLAXIS
     Dosage: QUITE A BIT TID, TOPICAL
     Route: 061
     Dates: start: 20050501, end: 20050606
  2. TOCOPHEROL (TOCOPHEROL) [Concomitant]
  3. MULTIVITAMINS (ASCORBIC ACID, ERGOCALCIFEROL, FOLIC ACID, NICOTINAMIDE [Concomitant]
  4. CALCIUM (CALCIUM) [Concomitant]
  5. SOY ISOFLAVONES (SOY ISOFLAVONES) [Concomitant]
  6. SIMVASTATIN [Concomitant]
  7. SERTRALINE HCL [Concomitant]
  8. DOCUSATE SODIUM (DOCUSATE SODIUM) [Concomitant]

REACTIONS (4)
  - ACCIDENTAL EXPOSURE [None]
  - CHEMICAL BURNS OF EYE [None]
  - EYE IRRITATION [None]
  - EYE PAIN [None]
